FAERS Safety Report 8840286 (Version 2)
Quarter: 2012Q4

REPORT INFORMATION
  Report Type: Report from Study
  Country: IE (occurrence: IE)
  Receive Date: 20121015
  Receipt Date: 20121205
  Transmission Date: 20130627
  Serious: Yes (Hospitalization)
  Sender: FDA-Public Use
  Company Number: IE-US-EMD SERONO, INC.-7167091

PATIENT
  Age: 40 Year
  Sex: Male

DRUGS (3)
  1. REBIF [Suspect]
     Indication: RELAPSING-REMITTING MULTIPLE SCLEROSIS
     Route: 058
     Dates: start: 20040216
  2. DESMOPRESSIN [Suspect]
     Indication: OLIGURIA
     Route: 048
     Dates: start: 20120802
  3. NORDURINE [Suspect]
     Indication: PRODUCT USED FOR UNKNOWN INDICATION
     Route: 048

REACTIONS (6)
  - Hyponatraemia [Recovered/Resolved]
  - Coma [Recovered/Resolved]
  - Amnesia [Unknown]
  - Haemoglobin decreased [Recovering/Resolving]
  - Constipation [Recovering/Resolving]
  - Fall [None]
